FAERS Safety Report 6529330-4 (Version None)
Quarter: 2010Q1

REPORT INFORMATION
  Report Type: 
  Country: None (occurrence: None)
  Receive Date: 20100104
  Receipt Date: 20091221
  Transmission Date: 20100710
  Serious: Yes (Hospitalization)
  Sender: FDA-Public Use
  Company Number: JP-2009-2476

PATIENT
  Age: 46 Year
  Sex: Female

DRUGS (3)
  1. NAVELBINE [Suspect]
     Indication: LUNG NEOPLASM MALIGNANT
     Dosage: 20 MG/M2 UNK IV
     Route: 042
     Dates: start: 20051201
  2. CISPLATIN [Suspect]
     Indication: LUNG CARCINOMA CELL TYPE UNSPECIFIED STAGE III
     Dosage: 80 MG/M2 UNK IV
     Route: 042
     Dates: start: 20051201
  3. CISPLATIN [Concomitant]

REACTIONS (5)
  - ANAEMIA [None]
  - COLITIS ULCERATIVE [None]
  - CYTOMEGALOVIRUS TEST POSITIVE [None]
  - HAEMORRHOIDS [None]
  - PYREXIA [None]
